FAERS Safety Report 4523010-2 (Version None)
Quarter: 2004Q4

REPORT INFORMATION
  Report Type: 
  Country: None (occurrence: None)
  Receive Date: 20041207
  Receipt Date: 20041207
  Transmission Date: 20050328
  Serious: Yes (Hospitalization)
  Sender: FDA-Public Use
  Company Number: None

PATIENT
  Age: 50 Year
  Sex: Male
  Weight: 71.6683 kg

DRUGS (2)
  1. LIPITOR [Suspect]
     Indication: HYPERLIPIDAEMIA
     Dosage: 1 QD ORAL
     Route: 048
     Dates: start: 20011007, end: 20020202
  2. CRESTOR [Suspect]
     Dosage: 1 QD ORAL
     Route: 048
     Dates: start: 20020203, end: 20040105

REACTIONS (8)
  - ALANINE AMINOTRANSFERASE INCREASED [None]
  - ARRHYTHMIA [None]
  - ATRIAL FIBRILLATION [None]
  - ECHOCARDIOGRAM ABNORMAL [None]
  - EFFUSION [None]
  - ELECTROCARDIOGRAM ST SEGMENT ELEVATION [None]
  - PERICARDITIS [None]
  - RHABDOMYOLYSIS [None]
